FAERS Safety Report 12509048 (Version 1)
Quarter: 2016Q2

REPORT INFORMATION
  Report Type: Spontaneous
  Country: GB (occurrence: GB)
  Receive Date: 20160629
  Receipt Date: 20160629
  Transmission Date: 20160815
  Serious: Yes (Other)
  Sender: FDA-Public Use
  Company Number: GB-009507513-1606GBR013536

PATIENT
  Age: 30 Year
  Sex: Female
  Weight: 60 kg

DRUGS (1)
  1. NUVARING [Suspect]
     Active Substance: ETHINYL ESTRADIOL\ETONOGESTREL
     Indication: CONTRACEPTION
     Route: 067
     Dates: start: 20160328, end: 20160612

REACTIONS (4)
  - Disturbance in sexual arousal [Recovering/Resolving]
  - Dyspareunia [Recovered/Resolved]
  - Nausea [Recovered/Resolved]
  - Cluster headache [Recovered/Resolved]
